FAERS Safety Report 7522620-8 (Version None)
Quarter: 2011Q2

REPORT INFORMATION
  Report Type: 
  Country: None (occurrence: None)
  Receive Date: 20110525
  Receipt Date: 20110511
  Transmission Date: 20111010
  Serious: Yes (Hospitalization)
  Sender: FDA-Public Use
  Company Number: FK201101039

PATIENT
  Age: 37 Year
  Sex: Female
  Weight: 58.9 kg

DRUGS (2)
  1. CISPLATIN [Suspect]
     Indication: METASTATIC GASTRIC CANCER
     Dosage: 1260 MG, INTRAVENOUS (NOT OTHERWISE SPECIFIED)
     Route: 042
     Dates: start: 20110421
  2. FLUOROURACIL INJ [Suspect]
     Indication: METASTATIC GASTRIC CANCER
     Dosage: 1264 MG, INTRAVENOUS (NOT  OTHERWISE SPECIFIED)
     Route: 042
     Dates: start: 20110421

REACTIONS (2)
  - HYPOKALAEMIA [None]
  - DEHYDRATION [None]
